FAERS Safety Report 9511413 (Version 1)
Quarter: 2013Q3

REPORT INFORMATION
  Report Type: Spontaneous
  Country: DE (occurrence: DE)
  Receive Date: 20130910
  Receipt Date: 20130910
  Transmission Date: 20140515
  Serious: Yes (Other)
  Sender: FDA-Public Use
  Company Number: DE-AMGEN-DEUSP2013062591

PATIENT
  Sex: Male

DRUGS (2)
  1. XGEVA [Suspect]
     Indication: METASTATIC RENAL CELL CARCINOMA
     Dosage: 120 MG, Q4WK
     Route: 065
  2. SUTENT [Concomitant]

REACTIONS (1)
  - Osteonecrosis of jaw [Unknown]
